FAERS Safety Report 8438454-6 (Version None)
Quarter: 2012Q2

REPORT INFORMATION
  Report Type: 
  Country: None (occurrence: None)
  Receive Date: 20120614
  Receipt Date: 20120613
  Transmission Date: 20120825
  Serious: Yes (Hospitalization)
  Sender: FDA-Public Use
  Company Number: SE-AMGEN-SWESP2012026604

PATIENT
  Age: 69 Year
  Sex: Male

DRUGS (7)
  1. CALCIUM CARBONATE [Concomitant]
     Dosage: 500 MG, BID
     Route: 048
     Dates: end: 20120416
  2. OMEPRAZOLE [Concomitant]
     Dosage: UNK
  3. XGEVA [Suspect]
     Indication: PROSTATE CANCER
     Dosage: 120 MG, Q4WK
     Route: 058
     Dates: start: 20120320, end: 20120320
  4. PREDNISOLONE [Concomitant]
     Dosage: UNK
  5. OXYNORM [Concomitant]
     Dosage: UNK
  6. CALCIUM CARBONATE [Concomitant]
     Dosage: 1500 MG, BID
     Route: 048
     Dates: start: 20120417
  7. MOVICOL                            /01749801/ [Concomitant]
     Dosage: UNK

REACTIONS (4)
  - MUSCLE SPASMS [None]
  - HYPOCALCAEMIA [None]
  - PARAESTHESIA [None]
  - UPPER RESPIRATORY TRACT INFECTION [None]
